FAERS Safety Report 9379556 (Version 2)
Quarter: 2013Q3

REPORT INFORMATION
  Report Type: Spontaneous
  Country: US (occurrence: US)
  Receive Date: 20130702
  Receipt Date: 20130723
  Transmission Date: 20140515
  Serious: Yes (Other)
  Sender: FDA-Public Use
  Company Number: US-SANOFI-AVENTIS-2013SA065920

PATIENT
  Age: 63 Year
  Sex: Male

DRUGS (1)
  1. AUBAGIO [Suspect]
     Indication: MULTIPLE SCLEROSIS
     Dosage: DRUG STOP DATE: 6 WEEKS AGO
     Route: 048

REACTIONS (3)
  - Convulsion [Unknown]
  - Pruritus [Unknown]
  - Feeling abnormal [Unknown]
